FAERS Safety Report 10308775 (Version 2)
Quarter: 2014Q3

REPORT INFORMATION
  Report Type: Spontaneous
  Country: IL (occurrence: IL)
  Receive Date: 20140716
  Receipt Date: 20140716
  Transmission Date: 20150326
  Serious: Yes (Other)
  Sender: FDA-Public Use
  Company Number: IL-GILEAD-2014-0104856

PATIENT
  Age: 32 Year
  Sex: Female

DRUGS (10)
  1. VITAMIN D [Concomitant]
     Active Substance: CHOLECALCIFEROL
     Dosage: 400 UNITS
  2. BRICALIN [Concomitant]
     Dosage: 10 MG, BID
     Route: 055
  3. SERETIDE [Concomitant]
     Active Substance: FLUTICASONE FUROATE\SALMETEROL XINAFOATE
     Dosage: 50 500+MCG, BID
     Route: 055
  4. ZETO                               /00944301/ [Concomitant]
     Dosage: 250 MG, QD
  5. COLIRACIN [Concomitant]
     Dosage: UNK, QD
     Route: 055
  6. ADEKS                              /07504401/ [Concomitant]
     Dosage: QD, TABLET
  7. CREON [Concomitant]
     Active Substance: PANCRELIPASE AMYLASE\PANCRELIPASE LIPASE\PANCRELIPASE PROTEASE
     Dosage: TABLET
  8. MUCOCLEAR [Concomitant]
     Dosage: 6%, QD
     Route: 055
  9. CAYSTON [Suspect]
     Active Substance: AZTREONAM
     Indication: CYSTIC FIBROSIS
     Dosage: 1 CYCLE
     Route: 065
     Dates: start: 201405
  10. NOVORAPID [Concomitant]
     Active Substance: INSULIN ASPART
     Route: 058

REACTIONS (2)
  - Arthritis [Not Recovered/Not Resolved]
  - Arthralgia [Unknown]
